FAERS Safety Report 9040805 (Version 1)
Quarter: 2013Q1

REPORT INFORMATION
  Report Type: Report from Study
  Country: US (occurrence: US)
  Receive Date: 20130129
  Receipt Date: 20130129
  Transmission Date: 20140127
  Serious: No
  Sender: FDA-Public Use
  Company Number: US-ABBOTT-12P-163-0895523-00

PATIENT
  Age: 36 Year
  Sex: Female

DRUGS (11)
  1. HUMIRA 40 MG/0.8 ML PEN [Suspect]
     Indication: CROHN^S DISEASE
     Dosage: STARTING DOSE
     Dates: start: 20120119
  2. TEGRETOL XR [Concomitant]
     Indication: CONVULSION
     Dosage: 200MG IN THE AM AND 100MG IN THE PM
     Route: 048
  3. PAROXETINE [Concomitant]
     Indication: DEPRESSION
     Route: 048
  4. YAZ [Concomitant]
     Indication: PREMENSTRUAL SYNDROME
     Route: 048
  5. PANTOPRAZOLE [Concomitant]
     Indication: GASTROOESOPHAGEAL REFLUX DISEASE
     Route: 048
  6. CLONAZEPAM [Concomitant]
     Indication: RESTLESS LEGS SYNDROME
     Route: 048
  7. CELEBREX [Concomitant]
     Indication: ARTHRITIS
     Route: 048
  8. ALLEGRA OTC [Concomitant]
     Indication: HYPERSENSITIVITY
     Route: 048
  9. ZYRTEC OTC [Concomitant]
     Indication: HYPERSENSITIVITY
  10. BOTOX [Concomitant]
     Indication: DYSTONIA
  11. CENTRUM ULTRA WOMEN^S [Concomitant]
     Indication: VITAMIN SUPPLEMENTATION
     Route: 048

REACTIONS (1)
  - Fatigue [Recovering/Resolving]
